FAERS Safety Report 10307518 (Version 1)
Quarter: 2014Q3

REPORT INFORMATION
  Report Type: Spontaneous
  Country: US (occurrence: None)
  Receive Date: 20140714
  Receipt Date: 20140714
  Transmission Date: 20150326
  Serious: Yes (Disabling)
  Sender: FDA-Public Use
  Company Number: None

PATIENT
  Age: 65 Year
  Sex: Female
  Weight: 90.72 kg

DRUGS (2)
  1. SIMVASTATIN. [Suspect]
     Active Substance: SIMVASTATIN
     Indication: PROPHYLAXIS
     Dosage: 1PILL DAILY  AT BEDTIME  TAKEN BY MOUTH
     Route: 048
  2. SIMVASTATIN. [Suspect]
     Active Substance: SIMVASTATIN
     Indication: BLOOD CHOLESTEROL INCREASED
     Dosage: 1PILL DAILY  AT BEDTIME  TAKEN BY MOUTH
     Route: 048

REACTIONS (2)
  - Groin pain [None]
  - Muscle spasms [None]

NARRATIVE: CASE EVENT DATE: 20140709
